FAERS Safety Report 4300588-5 (Version None)
Quarter: 2004Q1

REPORT INFORMATION
  Report Type: 
  Country: None (occurrence: None)
  Receive Date: 20040219
  Receipt Date: 20040219
  Transmission Date: 20041129
  Serious: Yes (Hospitalization)
  Sender: FDA-Public Use
  Company Number: None

PATIENT
  Age: 50 Year
  Sex: Male

DRUGS (10)
  1. COUMADIN [Suspect]
     Indication: DEEP VEIN THROMBOSIS
  2. FELODIPINE [Concomitant]
  3. FOLIC ACID [Concomitant]
  4. LASIX [Concomitant]
  5. MORPHINE [Concomitant]
  6. SULINDAC [Concomitant]
  7. LANSOPRAZOLE [Concomitant]
  8. METOPROLOL [Concomitant]
  9. ALPRAZOLAM [Concomitant]
  10. SIMVASTATIN [Concomitant]

REACTIONS (3)
  - COAGULOPATHY [None]
  - LOWER GASTROINTESTINAL HAEMORRHAGE [None]
  - UPPER GASTROINTESTINAL HAEMORRHAGE [None]
